FAERS Safety Report 5016532-1 (Version None)
Quarter: 2006Q2

REPORT INFORMATION
  Report Type: 
  Country: None (occurrence: None)
  Receive Date: 20060602
  Receipt Date: 20060523
  Transmission Date: 20061013
  Serious: Yes (Other)
  Sender: FDA-Public Use
  Company Number: BR-JNJFOC-20060505998

PATIENT
  Age: 2 Month
  Sex: Male

DRUGS (3)
  1. TYLENOL (GELTAB) [Suspect]
  2. TYLENOL (GELTAB) [Suspect]
     Indication: CRYING
     Dosage: UNKNOWN DOSE (ONE DROP/KG) EVERY 6 TO 8 HOURS; FOR APPROXIMATELY 1 AND A HALF MONTHS
  3. LUFTAL [Concomitant]
     Indication: DRUG USE FOR UNKNOWN INDICATION
     Dosage: 1 DROP/KG EVERY 6-8 HOURS, ORAL; FOR APPROXIMATELY 1 AND A HALF MONTHS

REACTIONS (3)
  - HAEMATEMESIS [None]
  - HAEMATOCHEZIA [None]
  - MEDICATION ERROR [None]
